FAERS Safety Report 10398683 (Version 3)
Quarter: 2014Q3

REPORT INFORMATION
  Report Type: Spontaneous
  Country: US (occurrence: US)
  Receive Date: 20140821
  Receipt Date: 20140829
  Transmission Date: 20150326
  Serious: Yes (Death, Hospitalization, Disabling)
  Sender: FDA-Public Use
  Company Number: US-009507513-2010SP055790

PATIENT
  Sex: Female
  Weight: 77.98 kg

DRUGS (1)
  1. NUVARING [Suspect]
     Active Substance: ETHINYL ESTRADIOL\ETONOGESTREL
     Indication: CONTRACEPTION
     Dosage: UNK
     Route: 067
     Dates: start: 20080504, end: 20081019

REACTIONS (4)
  - Deep vein thrombosis [Unknown]
  - Injury [Unknown]
  - Injury [Fatal]
  - Unintended pregnancy [Unknown]

NARRATIVE: CASE EVENT DATE: 20081019
